FAERS Safety Report 7514089-4 (Version None)
Quarter: 2011Q2

REPORT INFORMATION
  Report Type: 
  Country: None (occurrence: None)
  Receive Date: 20110531
  Receipt Date: 20100515
  Transmission Date: 20111010
  Serious: No
  Sender: FDA-Public Use
  Company Number: US-BAYER-201022798NA

PATIENT
  Age: 51 Year
  Sex: Male

DRUGS (1)
  1. AVELOX [Suspect]
     Indication: UPPER RESPIRATORY TRACT INFECTION
     Dosage: UNK
     Dates: start: 20100510, end: 20100514

REACTIONS (4)
  - FEELING ABNORMAL [None]
  - NERVOUSNESS [None]
  - TEARFULNESS [None]
  - CONFUSIONAL STATE [None]
